FAERS Safety Report 4664418-4 (Version None)
Quarter: 2005Q2

REPORT INFORMATION
  Report Type: 
  Country: None (occurrence: None)
  Receive Date: 20050518
  Receipt Date: 20020924
  Transmission Date: 20051028
  Serious: Yes (Hospitalization)
  Sender: FDA-Public Use
  Company Number: US-AMGEN-US019655

PATIENT
  Sex: Female
  Weight: 77.6 kg

DRUGS (9)
  1. DARBEPOETIN ALFA [Suspect]
     Indication: CARDIAC FAILURE CONGESTIVE
     Route: 058
     Dates: start: 20020828, end: 20020911
  2. DIGOXIN [Suspect]
     Route: 048
     Dates: start: 20020911
  3. LASIX [Suspect]
     Route: 048
  4. ATACAND [Suspect]
     Route: 048
  5. ASPIRIN [Suspect]
     Route: 048
  6. TOPROL-XL [Suspect]
     Route: 048
  7. HYDRALAZINE HCL [Suspect]
     Route: 048
  8. ZOCOR [Suspect]
     Route: 048
  9. GLUCOVANCE [Suspect]
     Route: 048

REACTIONS (3)
  - CEREBRAL ISCHAEMIA [None]
  - CEREBROVASCULAR ACCIDENT [None]
  - HAEMOGLOBIN DECREASED [None]
